FAERS Safety Report 8131096 (Version 6)
Quarter: 2024Q2

REPORT INFORMATION
  Report Type: Report from Study
  Country: US (occurrence: US)
  Receive Date: 20110912
  Receipt Date: 20240627
  Transmission Date: 20240716
  Serious: Yes (Hospitalization)
  Sender: FDA-Public Use
  Company Number: US-JNJFOC-20110901944

PATIENT
  Age: 60 Year
  Sex: Female
  Weight: 77.9 kg

DRUGS (14)
  1. REMICADE [Suspect]
     Active Substance: INFLIXIMAB
     Indication: Psoriasis
     Route: 041
     Dates: start: 20060424, end: 20090507
  2. REMICADE [Suspect]
     Active Substance: INFLIXIMAB
     Route: 041
     Dates: start: 20091027, end: 20100802
  3. REMICADE [Suspect]
     Active Substance: INFLIXIMAB
     Route: 041
     Dates: start: 20060424, end: 20090507
  4. REMICADE [Suspect]
     Active Substance: INFLIXIMAB
     Route: 041
     Dates: start: 20100830, end: 20151216
  5. METHOTREXATE [Suspect]
     Active Substance: METHOTREXATE
     Indication: Psoriasis
     Dates: start: 2010
  6. SIMPONI [Suspect]
     Active Substance: GOLIMUMAB
     Indication: Psoriasis
     Route: 058
     Dates: start: 20090623, end: 20090923
  7. PROPRANOLOL [Concomitant]
     Active Substance: PROPRANOLOL HYDROCHLORIDE
     Indication: Blood pressure measurement
     Route: 048
  8. OMEPRAZOLE [Concomitant]
     Active Substance: DONEPEZIL HYDROCHLORIDE\OMEPRAZOLE\OMEPRAZOLE MAGNESIUM
     Route: 048
  9. LOVASTATIN [Concomitant]
     Active Substance: LOVASTATIN
  10. FOLIC ACID [Concomitant]
     Active Substance: FOLIC ACID
  11. ROPINIROLE [Concomitant]
     Active Substance: ROPINIROLE
     Route: 048
  12. PREMARIN [Concomitant]
     Active Substance: ESTROGENS, CONJUGATED
  13. ENALAPRIL [Concomitant]
     Active Substance: ENALAPRIL
     Route: 048
  14. TACLONEX [Concomitant]
     Active Substance: BETAMETHASONE DIPROPIONATE\CALCIPOTRIENE\CALCIPOTRIENE HYDRATE

REACTIONS (3)
  - Cytomegalovirus infection [Recovered/Resolved]
  - Hepatic enzyme increased [Recovered/Resolved]
  - Hepatic lesion [Unknown]

NARRATIVE: CASE EVENT DATE: 20110725
